FAERS Safety Report 9636228 (Version 2)
Quarter: 2013Q4

REPORT INFORMATION
  Report Type: Spontaneous
  Country: JP (occurrence: JP)
  Receive Date: 20131021
  Receipt Date: 20131021
  Transmission Date: 20140711
  Serious: Yes (Other)
  Sender: FDA-Public Use
  Company Number: JP-PFIZER INC-2013275914

PATIENT
  Age: 67 Year
  Sex: Male
  Weight: 62 kg

DRUGS (11)
  1. FLUVOXAMINE MALEATE [Suspect]
     Indication: DEPRESSION
     Dosage: 150 MG, DAILY
  2. CISPLATIN [Suspect]
     Indication: SMALL CELL LUNG CANCER
     Dosage: 60 MG/M2 DAY 1
  3. LEVOTHYROXINE SODIUM [Suspect]
     Indication: HYPOTHYROIDISM
     Dosage: 200 UG, DAILY
  4. METOCLOPRAMIDE [Suspect]
  5. CLOPIDOGREL [Concomitant]
     Indication: ANTIPLATELET THERAPY
     Dosage: 75 MG, DAILY
     Route: 048
  6. CANDESARTAN CILEXETIL [Concomitant]
     Dosage: 4 MG, DAILY
  7. OXYCODONE [Concomitant]
     Indication: PAIN
     Dosage: 10 MG
  8. CARBOPLATIN [Concomitant]
     Indication: SMALL CELL LUNG CANCER
     Dosage: AUC=5 DAY 1
  9. VP-16 [Concomitant]
     Indication: SMALL CELL LUNG CANCER
     Dosage: 80 MG/M2 DAYS 1-3
  10. GRANISETRON [Concomitant]
     Indication: ANTIEMETIC SUPPORTIVE CARE
  11. IRINOTECAN [Concomitant]
     Indication: SMALL CELL LUNG CANCER
     Dosage: 60 MG/M2 ON DAYS 1 AND 8

REACTIONS (7)
  - Serotonin syndrome [Recovering/Resolving]
  - Extrapyramidal disorder [Unknown]
  - Tremor [Unknown]
  - Tremor [Unknown]
  - Anxiety [Unknown]
  - Emotional disorder [Unknown]
  - Fatigue [Unknown]
